FAERS Safety Report 8251683-X (Version None)
Quarter: 2012Q1

REPORT INFORMATION
  Report Type: 
  Country: None (occurrence: None)
  Receive Date: 20120328
  Receipt Date: 20120320
  Transmission Date: 20120608
  Serious: Yes (Other)
  Sender: FDA-Public Use
  Company Number: 2011MA001758

PATIENT
  Sex: Female
  Weight: 106.1417 kg

DRUGS (15)
  1. NEURONTIN [Concomitant]
  2. AMBIEN [Concomitant]
  3. METOCLOPRAMIDE [Suspect]
     Indication: GASTROOESOPHAGEAL REFLUX DISEASE
     Dosage: 20 MG;TID;PO
     Route: 048
     Dates: start: 20071003, end: 20080501
  4. METOCLOPRAMIDE [Suspect]
     Indication: NAUSEA
     Dosage: 20 MG;TID;PO
     Route: 048
     Dates: start: 20071003, end: 20080501
  5. METOCLOPRAMIDE [Suspect]
     Indication: IMPAIRED GASTRIC EMPTYING
     Dosage: 20 MG;TID;PO
     Route: 048
     Dates: start: 20071003, end: 20080501
  6. STRATTERA [Concomitant]
  7. PROMETHAZINE [Concomitant]
  8. ZOCOR [Concomitant]
  9. HYDROCHLOROTHIAZIDE [Concomitant]
  10. SEROQUEL [Concomitant]
  11. LAMICTAL [Concomitant]
  12. REQUIP [Concomitant]
  13. CONCERTA [Concomitant]
  14. LORAZEPAM [Concomitant]
  15. RITALIN [Concomitant]

REACTIONS (29)
  - LOSS OF CONSCIOUSNESS [None]
  - BIPOLAR DISORDER [None]
  - PHOTOPHOBIA [None]
  - AMNESIA [None]
  - ECONOMIC PROBLEM [None]
  - URINARY INCONTINENCE [None]
  - MUSCLE SPASMS [None]
  - INJURY [None]
  - PROTRUSION TONGUE [None]
  - MYOCLONUS [None]
  - ANXIETY [None]
  - DEPRESSION [None]
  - GAIT DISTURBANCE [None]
  - BLADDER DISORDER [None]
  - SLEEP APNOEA SYNDROME [None]
  - BLEPHAROSPASM [None]
  - DYSKINESIA [None]
  - DYSARTHRIA [None]
  - SPEECH DISORDER [None]
  - TONGUE BITING [None]
  - INSOMNIA [None]
  - GLOSSODYNIA [None]
  - HEADACHE [None]
  - RESTLESS LEGS SYNDROME [None]
  - DIPLOPIA [None]
  - PHONOPHOBIA [None]
  - MIGRAINE [None]
  - ATTENTION DEFICIT/HYPERACTIVITY DISORDER [None]
  - GRAND MAL CONVULSION [None]
